FAERS Safety Report 8991776 (Version 1)
Quarter: 2012Q4

REPORT INFORMATION
  Report Type: 
  Country: US (occurrence: US)
  Receive Date: 20121231
  Receipt Date: 20121231
  Transmission Date: 20130627
  Serious: Yes (Other)
  Sender: FDA-Public Use
  Company Number: US-JNJFOC-20121212446

PATIENT
  Sex: Male
  Weight: 73.94 kg

DRUGS (7)
  1. REMICADE [Suspect]
     Indication: CROHN^S DISEASE
     Dosage: loading treatment in between second and third treatment
     Route: 042
     Dates: start: 20121101
  2. VENLAFAXINE [Concomitant]
     Indication: DEPRESSION
     Route: 065
     Dates: start: 2011
  3. ABILIFY [Concomitant]
     Indication: DEPRESSION
     Route: 065
     Dates: start: 2011
  4. LOMOTIL [Concomitant]
     Route: 065
  5. BENTYL [Concomitant]
     Route: 065
  6. ALL OTHER THERAPEUTICS [Concomitant]
     Indication: CROHN^S DISEASE
     Route: 065
     Dates: start: 2012
  7. ANTIDIARRHEAL [Concomitant]
     Route: 065

REACTIONS (4)
  - Hepatitis B [Unknown]
  - Anxiety [Not Recovered/Not Resolved]
  - Depression [Not Recovered/Not Resolved]
  - Fatigue [Not Recovered/Not Resolved]
